FAERS Safety Report 5394372-1 (Version None)
Quarter: 2007Q3

REPORT INFORMATION
  Report Type: 
  Country: None (occurrence: None)
  Receive Date: 20070723
  Receipt Date: 20070718
  Transmission Date: 20080115
  Serious: Yes (Other)
  Sender: FDA-Public Use
  Company Number: JP-MERCK-0707USA03075

PATIENT
  Age: 56 Year
  Sex: Male

DRUGS (9)
  1. PEPCID RPD [Suspect]
     Indication: GASTRITIS
     Route: 048
     Dates: start: 20070409
  2. ATELEC [Suspect]
     Route: 048
     Dates: start: 20070409
  3. DEPAS [Suspect]
     Route: 048
     Dates: start: 20070409
  4. AMARYL [Suspect]
     Route: 048
     Dates: start: 20070409
  5. CANDESARTAN CILEXETIL [Suspect]
     Route: 048
     Dates: start: 20070409
  6. PAXIL [Suspect]
     Route: 048
     Dates: start: 20070409
  7. ACTOS [Suspect]
     Route: 048
     Dates: start: 20070409
  8. MIGLITOL [Suspect]
     Route: 048
     Dates: start: 20070409
  9. ASPIRIN [Concomitant]
     Route: 048
     Dates: start: 20070409

REACTIONS (1)
  - LIVER DISORDER [None]
